FAERS Safety Report 19642725 (Version 1)
Quarter: 2021Q3

REPORT INFORMATION
  Report Type: Spontaneous
  Country: US (occurrence: US)
  Receive Date: 20210730
  Receipt Date: 20210730
  Transmission Date: 20211014
  Serious: No
  Sender: FDA-Public Use
  Company Number: US-SEBELA IRELAND LIMITED-2021SEB00020

PATIENT
  Sex: Female

DRUGS (2)
  1. PEXEVA [Suspect]
     Active Substance: PAROXETINE MESYLATE
     Dosage: UNK
     Dates: start: 201705, end: 2020
  2. PEXEVA [Suspect]
     Active Substance: PAROXETINE MESYLATE
     Dosage: UNK
     Dates: start: 2021

REACTIONS (3)
  - Cystitis interstitial [Unknown]
  - Vaginal disorder [Unknown]
  - Urinary tract infection [Unknown]

NARRATIVE: CASE EVENT DATE: 2017
